FAERS Safety Report 16900310 (Version 1)
Quarter: 2019Q4

REPORT INFORMATION
  Report Type: Spontaneous
  Country: US (occurrence: US)
  Receive Date: 20190816
  Receipt Date: 20190816
  Transmission Date: 20200122
  Serious: Yes (Hospitalization)
  Sender: FDA-Public Use
  Company Number: None

PATIENT
  Age: 76 Year
  Sex: Male
  Weight: 89.8 kg

DRUGS (1)
  1. CISPLATIN. [Suspect]
     Active Substance: CISPLATIN
     Dates: end: 20190722

REACTIONS (20)
  - Weight decreased [None]
  - Pyrexia [None]
  - Dehydration [None]
  - Hallucination [None]
  - Facial pain [None]
  - Oropharyngeal pain [None]
  - Oesophagitis [None]
  - Impaired gastric emptying [None]
  - Mucosal inflammation [None]
  - Odynophagia [None]
  - Hypertension [None]
  - Agitation [None]
  - Dysphagia [None]
  - Asthenia [None]
  - Dizziness [None]
  - Tachycardia [None]
  - Pain in jaw [None]
  - Failure to thrive [None]
  - Hyponatraemia [None]
  - Somnolence [None]

NARRATIVE: CASE EVENT DATE: 20190730
